FAERS Safety Report 6582408-1 (Version None)
Quarter: 2010Q1

REPORT INFORMATION
  Report Type: 
  Country: None (occurrence: None)
  Receive Date: 20100125
  Receipt Date: 20091023
  Transmission Date: 20100710
  Serious: Yes (Hospitalization)
  Sender: FDA-Public Use
  Company Number: 2009BI034622

PATIENT
  Age: 62 Year
  Sex: Male

DRUGS (2)
  1. TYSABRI [Suspect]
     Indication: MULTIPLE SCLEROSIS
     Dates: start: 20080616
  2. AVONEX [Concomitant]

REACTIONS (12)
  - ASTHMA [None]
  - BLADDER DISORDER [None]
  - DECREASED APPETITE [None]
  - DYSPNOEA [None]
  - FIBROMYALGIA [None]
  - GAIT DISTURBANCE [None]
  - HERPES ZOSTER [None]
  - MULTIPLE SCLEROSIS RELAPSE [None]
  - NEUROPATHY PERIPHERAL [None]
  - PAIN IN EXTREMITY [None]
  - PNEUMONIA [None]
  - SINUSITIS [None]
